FAERS Safety Report 5276998-9 (Version None)
Quarter: 2007Q1

REPORT INFORMATION
  Report Type: 
  Country: None (occurrence: None)
  Receive Date: 20070327
  Receipt Date: 20061226
  Transmission Date: 20070707
  Serious: No
  Sender: FDA-Public Use
  Company Number: US-BRISTOL-MYERS SQUIBB COMPANY-13625165

PATIENT
  Sex: Female

DRUGS (14)
  1. ORENCIA [Suspect]
     Dates: start: 20060901
  2. DILANTIN [Concomitant]
  3. DIOVAN [Concomitant]
  4. FLOVENT [Concomitant]
     Route: 055
  5. SEREVENT [Concomitant]
  6. PREDNISONE [Concomitant]
  7. FOLIC ACID [Concomitant]
  8. METHOTREXATE [Concomitant]
  9. MINOCYCLINE HCL [Concomitant]
  10. SULFASALAZINE [Concomitant]
  11. COLCHICINE [Concomitant]
  12. ALLOPURINOL [Concomitant]
  13. PRILOSEC [Concomitant]
  14. SULINDAC [Concomitant]

REACTIONS (5)
  - ABDOMINAL DISTENSION [None]
  - FLATULENCE [None]
  - GASTROINTESTINAL PAIN [None]
  - MUSCULOSKELETAL STIFFNESS [None]
  - NAUSEA [None]
